FAERS Safety Report 4919059-8 (Version None)
Quarter: 2006Q1

REPORT INFORMATION
  Report Type: 
  Country: None (occurrence: None)
  Receive Date: 20060222
  Receipt Date: 20051001
  Transmission Date: 20060701
  Serious: Yes (Other)
  Sender: FDA-Public Use
  Company Number: PR-MERCK-0510USA00775

PATIENT
  Sex: Male

DRUGS (8)
  1. VIOXX [Suspect]
     Indication: ARTHRALGIA
     Route: 048
     Dates: start: 20020218, end: 20020218
  2. VIOXX [Suspect]
     Route: 048
     Dates: start: 20020219
  3. VIOXX [Suspect]
     Route: 048
     Dates: start: 20020718, end: 20020720
  4. VIOXX [Suspect]
     Route: 048
     Dates: start: 20020721
  5. VIOXX [Suspect]
     Indication: BACK PAIN
     Route: 048
     Dates: start: 20020218, end: 20020218
  6. VIOXX [Suspect]
     Route: 048
     Dates: start: 20020219
  7. VIOXX [Suspect]
     Route: 048
     Dates: start: 20020718, end: 20020720
  8. VIOXX [Suspect]
     Route: 048
     Dates: start: 20020721

REACTIONS (16)
  - ABDOMINAL PAIN UPPER [None]
  - ANGINA PECTORIS [None]
  - ARRHYTHMIA [None]
  - CARDIOVASCULAR DISORDER [None]
  - CEREBROVASCULAR ACCIDENT [None]
  - DIARRHOEA [None]
  - DRUG INEFFECTIVE [None]
  - DUODENITIS [None]
  - GASTRITIS [None]
  - HIATUS HERNIA [None]
  - LACUNAR INFARCTION [None]
  - MYOCARDIAL INFARCTION [None]
  - ORGAN FAILURE [None]
  - PULMONARY EMBOLISM [None]
  - RHEUMATOID ARTHRITIS [None]
  - THROMBOSIS [None]
